FAERS Safety Report 16734644 (Version 3)
Quarter: 2019Q3

REPORT INFORMATION
  Report Type: Report from Study
  Country: US (occurrence: US)
  Receive Date: 20190823
  Receipt Date: 20190905
  Transmission Date: 20191005
  Serious: Yes (Other)
  Sender: FDA-Public Use
  Company Number: PHEH2019US034423

PATIENT
  Sex: Male

DRUGS (2)
  1. MELOXICAM. [Suspect]
     Active Substance: MELOXICAM
     Indication: INFLAMMATION
     Route: 065
  2. ENTRESTO [Suspect]
     Active Substance: SACUBITRIL\VALSARTAN
     Indication: CARDIAC FAILURE CHRONIC
     Route: 048

REACTIONS (4)
  - Inflammation [Unknown]
  - Dyspnoea [Unknown]
  - Myocardial infarction [Unknown]
  - Adverse drug reaction [Unknown]
